FAERS Safety Report 17206073 (Version 1)
Quarter: 2020Q1

REPORT INFORMATION
  Report Type: Spontaneous
  Country: US (occurrence: US)
  Receive Date: 20191226
  Receipt Date: 20191226
  Transmission Date: 20200409
  Serious: Yes (Hospitalization)
  Sender: FDA-Public Use
  Company Number: None

PATIENT
  Sex: Male

DRUGS (14)
  1. SPIRIVA [Concomitant]
     Active Substance: TIOTROPIUM BROMIDE MONOHYDRATE
     Dates: start: 20190712
  2. ALBUTEROL AER HFA [Concomitant]
     Dates: start: 20191214
  3. SYMBICORT [Concomitant]
     Active Substance: BUDESONIDE\FORMOTEROL FUMARATE DIHYDRATE
     Dates: start: 20190709
  4. AZITHROMYCIN POW [Concomitant]
     Dates: start: 20191224
  5. SULFASALAZINE DELAYED-RELEASE [Concomitant]
     Active Substance: SULFASALAZINE
     Dates: start: 20190820
  6. D3 TAB [Concomitant]
     Dates: start: 20191224
  7. FISH OIL [Concomitant]
     Active Substance: FISH OIL
     Dates: start: 20191224
  8. MULTIVITAMIN TAB [Concomitant]
     Dates: start: 20191224
  9. HUMIRA [Suspect]
     Active Substance: ADALIMUMAB
     Indication: RHEUMATOID ARTHRITIS
     Dosage: ?          OTHER FREQUENCY:EVERY TWO WEEKS;?
     Route: 058
     Dates: start: 20170801
  10. PREDNISONE. [Concomitant]
     Active Substance: PREDNISONE
     Dates: start: 20190422
  11. PROAIR HFA AER [Concomitant]
     Dates: start: 20191217
  12. CYCLOBENZAPR [Concomitant]
     Active Substance: CYCLOBENZAPRINE
     Dates: start: 20181218
  13. NAPROXEN. [Concomitant]
     Active Substance: NAPROXEN
     Dates: start: 20191115
  14. TRAMADOL HCL [Concomitant]
     Active Substance: TRAMADOL HYDROCHLORIDE
     Dates: start: 20191114

REACTIONS (5)
  - Rheumatoid arthritis [None]
  - Infection [None]
  - Pain [None]
  - Decreased interest [None]
  - Pulmonary congestion [None]
